FAERS Safety Report 4783607-1 (Version None)
Quarter: 2005Q3

REPORT INFORMATION
  Report Type: 
  Country: None (occurrence: None)
  Receive Date: 20050914
  Receipt Date: 20040817
  Transmission Date: 20060218
  Serious: Yes (Death, Hospitalization, Other)
  Sender: FDA-Public Use
  Company Number: 163-20785-04080373

PATIENT
  Age: 57 Year
  Sex: Male

DRUGS (9)
  1. THALOMID [Suspect]
     Indication: PANCREATIC CARCINOMA
     Dosage: 200 MG, QHS, ORAL
     Route: 048
     Dates: start: 20040722, end: 20040811
  2. CELEBREX [Suspect]
     Indication: PANCREATIC CARCINOMA
     Dosage: 400 MG, BID, ORAL
     Route: 048
     Dates: start: 20040722, end: 20040811
  3. NEXIUM [Concomitant]
  4. FENTANYL [Concomitant]
  5. REMERON [Concomitant]
  6. KLONOPIN [Concomitant]
  7. PERCOCET [Concomitant]
  8. THORAZINE [Concomitant]
  9. GEMCITABINE (GEMCITABINE) [Suspect]
     Indication: PANCREATIC CARCINOMA
     Dosage: 1,000 MG/M2, DAYS 1 ON 8 EVERY 21 DAYS, INTRAVENOUS
     Route: 042
     Dates: start: 20040804, end: 20040811

REACTIONS (6)
  - BLOOD SODIUM DECREASED [None]
  - DEATH [None]
  - HYPOTENSION [None]
  - HYPOXIA [None]
  - LYMPHOCYTE COUNT DECREASED [None]
  - TACHYCARDIA [None]
